FAERS Safety Report 4807601-7 (Version None)
Quarter: 2005Q4

REPORT INFORMATION
  Report Type: 
  Country: None (occurrence: None)
  Receive Date: 20051024
  Receipt Date: 20051013
  Transmission Date: 20060501
  Serious: Yes (Other)
  Sender: FDA-Public Use
  Company Number: PHBS2005SE15098

PATIENT

DRUGS (2)
  1. TEGRETOL [Suspect]
     Route: 065
  2. LAMICTAL [Concomitant]

REACTIONS (1)
  - MULTIPLE FRACTURES [None]
